FAERS Safety Report 13641683 (Version 2)
Quarter: 2017Q3

REPORT INFORMATION
  Report Type: Report from Study
  Country: PA (occurrence: PA)
  Receive Date: 20170612
  Receipt Date: 20170707
  Transmission Date: 20171127
  Serious: Yes (Other)
  Sender: FDA-Public Use
  Company Number: PHHY2016PA167309

PATIENT
  Sex: Female
  Weight: 57.3 kg

DRUGS (2)
  1. AFINITOR [Suspect]
     Active Substance: EVEROLIMUS
     Indication: METASTASES TO LUNG
  2. AFINITOR [Suspect]
     Active Substance: EVEROLIMUS
     Indication: BREAST CANCER
     Dosage: 10 MG, QD
     Route: 048

REACTIONS (15)
  - Cheilitis [Unknown]
  - Rash [Recovering/Resolving]
  - Acne [Unknown]
  - Haemorrhoids [Recovering/Resolving]
  - Stomatitis [Recovered/Resolved]
  - Lip swelling [Recovered/Resolved]
  - Pain [Recovered/Resolved]
  - Back pain [Unknown]
  - Swollen tongue [Unknown]
  - Pulmonary oedema [Unknown]
  - Tongue erythema [Unknown]
  - Human bite [Unknown]
  - Nail disorder [Unknown]
  - Onychoclasis [Not Recovered/Not Resolved]
  - Impaired healing [Unknown]
